FAERS Safety Report 8874633 (Version 1)
Quarter: 2012Q4

REPORT INFORMATION
  Report Type: 
  Country: US (occurrence: US)
  Receive Date: 20121030
  Receipt Date: 20121030
  Transmission Date: 20130627
  Serious: Yes (Other)
  Sender: FDA-Public Use
  Company Number: US-009507513-1210USA010535

PATIENT
  Sex: Male

DRUGS (4)
  1. REBETOL [Suspect]
     Indication: HEPATITIS C
     Dosage: UNK
     Route: 048
     Dates: start: 20080501, end: 20090201
  2. REBETOL [Suspect]
     Dosage: UNK
     Route: 048
     Dates: start: 20091001, end: 20100901
  3. PEGASYS [Suspect]
     Indication: HEPATITIS C
     Dosage: UNK
     Dates: start: 20080501, end: 20090201
  4. PEGASYS [Suspect]
     Dosage: UNK
     Route: 048
     Dates: start: 20091001, end: 20100901

REACTIONS (2)
  - Cerebrovascular accident [Unknown]
  - Hepatitis C [Unknown]
